FAERS Safety Report 5338371-4 (Version None)
Quarter: 2007Q2

REPORT INFORMATION
  Report Type: 
  Country: None (occurrence: None)
  Receive Date: 20070322
  Receipt Date: 20060710
  Transmission Date: 20071010
  Serious: Yes (Other)
  Sender: FDA-Public Use
  Company Number: 200611632BCC

PATIENT
  Age: 57 Year
  Sex: Male
  Weight: 63.05 kg

DRUGS (2)
  1. ALEVE [Suspect]
     Indication: ARTHRITIS
     Dosage: 220 MG, QD, ORAL
     Route: 048
  2. MORPHINE [Concomitant]

REACTIONS (1)
  - BLOOD URINE PRESENT [None]
